FAERS Safety Report 21878584 (Version 1)
Quarter: 2023Q1

REPORT INFORMATION
  Report Type: Spontaneous
  Country: US (occurrence: US)
  Receive Date: 20230118
  Receipt Date: 20230118
  Transmission Date: 20230418
  Serious: Yes (Other)
  Sender: FDA-Public Use
  Company Number: US-GSK-US2023AMR006373

PATIENT

DRUGS (1)
  1. BENLYSTA [Suspect]
     Active Substance: BELIMUMAB
     Indication: Lupus nephritis
     Dosage: UNK
     Dates: start: 2022

REACTIONS (3)
  - Systemic lupus erythematosus [Unknown]
  - Thrombophlebitis [Unknown]
  - Antiphospholipid syndrome [Unknown]
